FAERS Safety Report 12828235 (Version 5)
Quarter: 2017Q1

REPORT INFORMATION
  Report Type: Report from Study
  Country: US (occurrence: US)
  Receive Date: 20161007
  Receipt Date: 20170110
  Transmission Date: 20170428
  Serious: Yes (Hospitalization, Other)
  Sender: FDA-Public Use
  Company Number: US-GILEAD-2016-0233438

PATIENT
  Age: 47 Year
  Sex: Female

DRUGS (3)
  1. IDELALISIB [Suspect]
     Active Substance: IDELALISIB
     Indication: NON-HODGKIN^S LYMPHOMA
     Dosage: 150 MG, BID
     Route: 048
     Dates: start: 20160901
  2. INSULIN [Concomitant]
     Active Substance: INSULIN NOS
  3. IDELALISIB [Suspect]
     Active Substance: IDELALISIB
     Dosage: 150 MG, BID
     Route: 048
     Dates: start: 20160920

REACTIONS (23)
  - Pain [Recovering/Resolving]
  - Movement disorder [Unknown]
  - Pruritus [Unknown]
  - Cognitive disorder [Unknown]
  - Gait disturbance [Unknown]
  - Muscular weakness [Unknown]
  - White blood cell count decreased [Unknown]
  - Drug dose omission [Unknown]
  - Pain [Unknown]
  - Blister [Unknown]
  - Wound [Unknown]
  - Pulmonary thrombosis [Recovered/Resolved]
  - Fatigue [Unknown]
  - Nausea [Unknown]
  - Neurological symptom [Unknown]
  - Oral pain [Unknown]
  - Decreased appetite [Unknown]
  - Blood glucose abnormal [Unknown]
  - Crying [Unknown]
  - Hypoaesthesia [Unknown]
  - Thinking abnormal [Unknown]
  - Paraesthesia [Recovered/Resolved]
  - Diarrhoea [Unknown]

NARRATIVE: CASE EVENT DATE: 201609
